FAERS Safety Report 6581887-3 (Version None)
Quarter: 2010Q1

REPORT INFORMATION
  Report Type: 
  Country: None (occurrence: None)
  Receive Date: 20100212
  Receipt Date: 20100212
  Transmission Date: 20100710
  Serious: Yes (Life-Threatening, Hospitalization)
  Sender: FDA-Public Use
  Company Number: None

PATIENT
  Age: 82 Year
  Sex: Male
  Weight: 96 kg

DRUGS (2)
  1. DIGOXIN [Suspect]
     Indication: CARDIAC FAILURE CONGESTIVE
     Dosage: 0.25 MG EVERY DAY PO
     Route: 048
     Dates: start: 20090118
  2. DIGOXIN [Suspect]
     Indication: SICK SINUS SYNDROME
     Dosage: 0.25 MG EVERY DAY PO
     Route: 048
     Dates: start: 20090118

REACTIONS (4)
  - ANGINA PECTORIS [None]
  - INCORRECT DOSE ADMINISTERED [None]
  - PRODUCT QUALITY ISSUE [None]
  - TABLET ISSUE [None]
